FAERS Safety Report 6482701-7 (Version None)
Quarter: 2009Q4

REPORT INFORMATION
  Report Type: 
  Country: None (occurrence: None)
  Receive Date: 20091209
  Receipt Date: 20091202
  Transmission Date: 20100525
  Serious: Yes (Other)
  Sender: FDA-Public Use
  Company Number: US-ELI_LILLY_AND_COMPANY-US200912001442

PATIENT
  Sex: Female
  Weight: 87.982 kg

DRUGS (5)
  1. BYETTA [Suspect]
     Indication: TYPE 2 DIABETES MELLITUS
     Dosage: 5 UG, 2/D
     Route: 058
     Dates: start: 20090601, end: 20090701
  2. BYETTA [Suspect]
     Dosage: 10 UG, 2/D
     Route: 058
     Dates: start: 20090701
  3. METFORMIN HCL [Concomitant]
     Indication: TYPE 2 DIABETES MELLITUS
     Dosage: 850 MG, 2/D
     Route: 048
     Dates: start: 20080101
  4. DIOVAN [Concomitant]
     Indication: RENAL DISORDER
     Dosage: 160 MG, DAILY (1/D)
     Route: 048
  5. CARVEDILOL [Concomitant]
     Indication: CARDIAC DISORDER
     Dosage: 3.125 MG, DAILY (1/D)
     Route: 048
     Dates: start: 20091001

REACTIONS (3)
  - CHEST DISCOMFORT [None]
  - DECREASED APPETITE [None]
  - WEIGHT DECREASED [None]
